FAERS Safety Report 10289167 (Version 2)
Quarter: 2014Q3

REPORT INFORMATION
  Report Type: Spontaneous
  Country: JP (occurrence: JP)
  Receive Date: 20140710
  Receipt Date: 20140716
  Transmission Date: 20150326
  Serious: Yes (Other)
  Sender: FDA-Public Use
  Company Number: JP-PFIZER INC-2014187252

PATIENT
  Age: 66 Year
  Sex: Male

DRUGS (5)
  1. LYRICA [Suspect]
     Active Substance: PREGABALIN
     Indication: HYPOAESTHESIA
  2. LYRICA [Suspect]
     Active Substance: PREGABALIN
     Indication: PAIN
     Dosage: 75 MG, 2X/DAY
     Route: 048
     Dates: start: 20140626
  3. MUCOSTA [Concomitant]
     Active Substance: REBAMIPIDE
     Dosage: 400 MG, DAILY
     Route: 048
  4. TATHION [Concomitant]
     Dosage: 400 MG, DAILY
     Route: 042
  5. BFLUID [Concomitant]
     Active Substance: AMINO ACIDS\DEXTROSE\ELECTROLYTES NOS\VITAMINS
     Dosage: 1 AMPULE, DAILY
     Route: 042

REACTIONS (2)
  - Oedema [Recovering/Resolving]
  - Blood albumin decreased [Unknown]

NARRATIVE: CASE EVENT DATE: 20140629
